FAERS Safety Report 5133046-9 (Version None)
Quarter: 2006Q4

REPORT INFORMATION
  Report Type: 
  Country: None (occurrence: None)
  Receive Date: 20061017
  Receipt Date: 20060324
  Transmission Date: 20070319
  Serious: Yes (Other)
  Sender: FDA-Public Use
  Company Number: 2006BH006502

PATIENT
  Age: 45 Year
  Sex: Male

DRUGS (3)
  1. TAZICEF [Suspect]
     Indication: PERITONITIS
     Dosage: 1 GM; PARN
  2. GENTAMICIN [Suspect]
     Indication: PERITONITIS
  3. TEICOPLANIN (TEICOPLANIN) [Suspect]
     Indication: PERITONITIS
     Dosage: 400 MG; PARN

REACTIONS (3)
  - KLEBSIELLA INFECTION [None]
  - NOSOCOMIAL INFECTION [None]
  - PERITONITIS [None]
